FAERS Safety Report 7118509-9 (Version None)
Quarter: 2010Q4

REPORT INFORMATION
  Report Type: 
  Country: None (occurrence: None)
  Receive Date: 20101123
  Receipt Date: 20100331
  Transmission Date: 20110411
  Serious: No
  Sender: FDA-Public Use
  Company Number: US-MYLANLABS-2010S1005642

PATIENT
  Sex: Male

DRUGS (1)
  1. CLONAZEPAM [Suspect]

REACTIONS (2)
  - REACTION TO DRUG EXCIPIENTS [None]
  - URTICARIA [None]
